FAERS Safety Report 17724676 (Version 1)
Quarter: 2020Q2

REPORT INFORMATION
  Report Type: Spontaneous
  Country: US (occurrence: US)
  Receive Date: 20200429
  Receipt Date: 20200429
  Transmission Date: 20200714
  Serious: No
  Sender: FDA-Public Use
  Company Number: US-ABBVIE-19K-163-2869231-00

PATIENT
  Sex: Male

DRUGS (2)
  1. ANDROGEL [Suspect]
     Active Substance: TESTOSTERONE
     Indication: PRODUCT USED FOR UNKNOWN INDICATION
     Dosage: ANDROGEL PUMP 16.2 MG/G
     Route: 061
     Dates: start: 2019, end: 2019
  2. ANDROGEL [Suspect]
     Active Substance: TESTOSTERONE
     Dosage: DOSE INCREASED
     Route: 061
     Dates: start: 2019

REACTIONS (3)
  - Device issue [Unknown]
  - Blood testosterone decreased [Unknown]
  - Ocular discomfort [Recovered/Resolved]

NARRATIVE: CASE EVENT DATE: 2019
